FAERS Safety Report 16961592 (Version 12)
Quarter: 2020Q2

REPORT INFORMATION
  Report Type: Report from Study
  Country: US (occurrence: US)
  Receive Date: 20191025
  Receipt Date: 20200402
  Transmission Date: 20200713
  Serious: Yes (Hospitalization, Other)
  Sender: FDA-Public Use
  Company Number: US-ASTRAZENECA-2019SE19546

PATIENT
  Age: 25344 Day
  Sex: Male

DRUGS (14)
  1. PREDNISONE. [Suspect]
     Active Substance: PREDNISONE
     Dosage: HE WAS TAKING TWO 20S A DAY
     Route: 048
  2. THYROID MEDICATION [Concomitant]
     Active Substance: UNSPECIFIED INGREDIENT
     Indication: THYROID DISORDER
  3. PREDNISONE. [Suspect]
     Active Substance: PREDNISONE
     Dosage: 80MG OF PREDINSONE OVER FIVE DAYS, THEN FIVE DAYS OF 60MG, FIVE DAYS OF 40MG, 5 DAYS OF 20MG AND ...
     Route: 048
  4. XARELTO [Concomitant]
     Active Substance: RIVAROXABAN
     Indication: ANTIPLATELET THERAPY
  5. CALCIUM SUPPLEMENT [Concomitant]
     Active Substance: CALCIUM
  6. IMFINZI [Suspect]
     Active Substance: DURVALUMAB
     Indication: LUNG NEOPLASM MALIGNANT
     Route: 042
     Dates: start: 20190206, end: 20190917
  7. SULFAMETHOXAZOLE [Concomitant]
     Active Substance: SULFAMETHOXAZOLE
     Dosage: 800 3 TIMES A WEEK
  8. FLOMAX [Concomitant]
     Active Substance: TAMSULOSIN HYDROCHLORIDE
     Indication: URINE OUTPUT DECREASED
  9. VITAMIN D [Concomitant]
     Active Substance: VITAMIN D NOS
     Dosage: 50000.0IU UNKNOWN
  10. GABAPENTIN. [Concomitant]
     Active Substance: GABAPENTIN
  11. PREDNISONE. [Suspect]
     Active Substance: PREDNISONE
     Dosage: TAKING JUST 1 PREDINISONE A DAY
     Route: 048
  12. AMBIEN [Concomitant]
     Active Substance: ZOLPIDEM TARTRATE
     Indication: INSOMNIA
  13. VITAMIN [Concomitant]
     Active Substance: VITAMINS
     Dosage: 5000 UNITS ONCE A WEEK
  14. PREDNISONE. [Suspect]
     Active Substance: PREDNISONE
     Dosage: WENT DOWN TO ALTERNATING TAKING ONE PILL AND 2 PILLS
     Route: 048

REACTIONS (54)
  - Pneumonia [Not Recovered/Not Resolved]
  - Immune system disorder [Unknown]
  - Feeling abnormal [Unknown]
  - Diaphragmalgia [Unknown]
  - Ageusia [Unknown]
  - Parathyroid disorder [Unknown]
  - Dehydration [Unknown]
  - Renal impairment [Unknown]
  - White blood cell disorder [Unknown]
  - Interstitial lung disease [Unknown]
  - Pneumonitis [Unknown]
  - Burning sensation [Unknown]
  - Feeling cold [Unknown]
  - Gastrointestinal sounds abnormal [Unknown]
  - Musculoskeletal stiffness [Not Recovered/Not Resolved]
  - Oropharyngeal pain [Unknown]
  - Pulmonary congestion [Not Recovered/Not Resolved]
  - Lymphoma [Unknown]
  - Fatigue [Not Recovered/Not Resolved]
  - Radiation pneumonitis [Unknown]
  - Headache [Unknown]
  - Nausea [Unknown]
  - Inappropriate schedule of product administration [Unknown]
  - Mobility decreased [Not Recovered/Not Resolved]
  - Dizziness [Unknown]
  - Peripheral swelling [Not Recovered/Not Resolved]
  - Thyroid hormones increased [Not Recovered/Not Resolved]
  - Abdominal pain [Unknown]
  - Productive cough [Not Recovered/Not Resolved]
  - Spinal disorder [Unknown]
  - Sleep disorder [Unknown]
  - Pain [Not Recovered/Not Resolved]
  - Pulmonary mycosis [Unknown]
  - Eye irritation [Unknown]
  - Chills [Unknown]
  - Chest pain [Recovering/Resolving]
  - Gait disturbance [Unknown]
  - Nervousness [Not Recovered/Not Resolved]
  - Product dose omission [Unknown]
  - Blood calcium decreased [Recovering/Resolving]
  - Muscle spasms [Unknown]
  - Peripheral coldness [Not Recovered/Not Resolved]
  - Joint swelling [Not Recovered/Not Resolved]
  - Asthenia [Recovering/Resolving]
  - Dyspnoea [Not Recovered/Not Resolved]
  - Organising pneumonia [Unknown]
  - Lower respiratory tract infection [Unknown]
  - Pruritus [Not Recovered/Not Resolved]
  - Neuropathy peripheral [Recovering/Resolving]
  - Diarrhoea [Unknown]
  - Blood thyroid stimulating hormone decreased [Unknown]
  - Taste disorder [Unknown]
  - Malaise [Unknown]
  - Vision blurred [Unknown]

NARRATIVE: CASE EVENT DATE: 20190129
